FAERS Safety Report 5178819-1 (Version None)
Quarter: 2006Q4

REPORT INFORMATION
  Report Type: 
  Country: None (occurrence: None)
  Receive Date: 20061208
  Receipt Date: 20061130
  Transmission Date: 20070319
  Serious: Yes (Other)
  Sender: FDA-Public Use
  Company Number: CHNY2006DE03258

PATIENT
  Age: 41 Year
  Sex: Male

DRUGS (2)
  1. NICOTINELL LOZENGE (NCH) (NICOTINE) LOZENGE [Suspect]
     Dosage: 1 MG, ORAL
     Route: 048
     Dates: start: 20061101, end: 20061101
  2. FLUANXOL (FLUPENTIXOL DIHYDROCHLORIDE) [Concomitant]

REACTIONS (3)
  - JOINT SWELLING [None]
  - PRURITUS GENERALISED [None]
  - URTICARIA GENERALISED [None]
